FAERS Safety Report 21974191 (Version 2)
Quarter: 2023Q4

REPORT INFORMATION
  Report Type: Spontaneous
  Country: US (occurrence: US)
  Receive Date: 20230209
  Receipt Date: 20231213
  Transmission Date: 20240110
  Serious: No
  Sender: FDA-Public Use
  Company Number: US-SA-SAC20230130000776

PATIENT

DRUGS (1)
  1. LARONIDASE [Suspect]
     Active Substance: LARONIDASE
     Indication: Mucopolysaccharidosis I
     Dosage: 14.5 (UNIT NOT KNOWN), QW
     Route: 042
     Dates: start: 20220216

REACTIONS (3)
  - COVID-19 [Recovering/Resolving]
  - Fear of injection [Recovering/Resolving]
  - Poor venous access [Not Recovered/Not Resolved]
